FAERS Safety Report 9305900 (Version 1)
Quarter: 2013Q1

REPORT INFORMATION
  Report Type: Spontaneous
  Country: US (occurrence: None)
  Receive Date: 20130301
  Receipt Date: 20130301
  Transmission Date: 20140127
  Serious: Yes (Life-Threatening, Hospitalization, Disabling, Other)
  Sender: FDA-Public Use
  Company Number: 2010SA000585

PATIENT
  Age: 42 Year
  Sex: Male

DRUGS (11)
  1. PLAVIX / ORAL / TABLET, FILM COATED / 75 MILLIGRAM (S) TIME TO ONSET: 6 MONTH(S) (75 MG) [Suspect]
     Indication: ANTICOAGULANT THERAPY
     Route: 048
  2. AMBIEN [Suspect]
  3. ZOLPIDEM [Suspect]
  4. CLOPIDOGREL [Suspect]
  5. SIMVASTATIN [Concomitant]
  6. CITALOPRAM [Concomitant]
  7. AMITRIPTYLINE [Concomitant]
  8. FIORICET [Concomitant]
  9. NIACIN [Concomitant]
  10. HYDROCODONE [Concomitant]
  11. PRILOSEC [Concomitant]

REACTIONS (8)
  - Ulcer haemorrhage [None]
  - Asthenia [None]
  - Apparent death [None]
  - Gastrectomy [None]
  - Glaucoma [None]
  - Vascular graft [None]
  - Cardiac operation [None]
  - Blindness [None]
